FAERS Safety Report 4357540-3 (Version None)
Quarter: 2004Q2

REPORT INFORMATION
  Report Type: 
  Country: None (occurrence: None)
  Receive Date: 20040510
  Receipt Date: 20040503
  Transmission Date: 20050107
  Serious: No
  Sender: FDA-Public Use
  Company Number: 04P-056-0249995-00

PATIENT
  Age: 68 Year
  Sex: Female
  Weight: 67 kg

DRUGS (2)
  1. TRICOR [Suspect]
     Indication: HYPERCHOLESTEROLAEMIA
     Dosage: 160 MG , 1 IN 1 D, PER ORAL
     Route: 048
     Dates: start: 20030124, end: 20040122
  2. RALOXIFENE HCL [Suspect]
     Indication: OSTEOPOROSIS
     Dosage: 60 MG, 1 IN 1 D
     Dates: start: 20030803, end: 20040122

REACTIONS (4)
  - ALANINE AMINOTRANSFERASE INCREASED [None]
  - ASPARTATE AMINOTRANSFERASE INCREASED [None]
  - DRUG INTERACTION [None]
  - GAMMA-GLUTAMYLTRANSFERASE INCREASED [None]
